FAERS Safety Report 15120832 (Version 1)
Quarter: 2018Q3

REPORT INFORMATION
  Report Type: Spontaneous
  Country: GB (occurrence: GB)
  Receive Date: 20180709
  Receipt Date: 20180709
  Transmission Date: 20181010
  Serious: Yes (Life-Threatening, Other)
  Sender: FDA-Public Use
  Company Number: GB-PFIZER INC-2018271910

PATIENT
  Age: 87 Year
  Sex: Female
  Weight: 68 kg

DRUGS (6)
  1. PEMBROLIZUMAB. [Concomitant]
     Active Substance: PEMBROLIZUMAB
     Indication: COLON CANCER METASTATIC
     Dosage: 2MG/KG
     Route: 042
     Dates: start: 20161027, end: 20171020
  2. METHYLPREDNISOLONE SODIUM SUCCINATE. [Suspect]
     Active Substance: METHYLPREDNISOLONE SODIUM SUCCINATE
     Indication: PNEUMONIA
     Dosage: 1.2 G, UNK
     Route: 042
     Dates: start: 20171031, end: 20171102
  3. TINZAPARIN [Concomitant]
     Active Substance: TINZAPARIN
     Dosage: 0.55 ML, DAILY
     Route: 058
  4. PREDNISOLONE. [Suspect]
     Active Substance: PREDNISOLONE
     Indication: PNEUMONIA
     Dosage: 60 MG, UNK
     Route: 048
     Dates: start: 20171103, end: 20171108
  5. MEROPENEM. [Concomitant]
     Active Substance: MEROPENEM
     Dosage: 4 G, DAILY
     Route: 042
  6. COTRIMOXAZOLE [Concomitant]
     Active Substance: SULFAMETHOXAZOLE\TRIMETHOPRIM
     Dosage: 7200 MG, DAILY
     Route: 042

REACTIONS (1)
  - Gastrointestinal haemorrhage [Unknown]
